APPROVED DRUG PRODUCT: INNOVAR
Active Ingredient: DROPERIDOL; FENTANYL CITRATE
Strength: 2.5MG/ML;EQ 0.05MG BASE/ML
Dosage Form/Route: INJECTABLE;INJECTION
Application: N016049 | Product #001
Applicant: EPIC PHARMA LLC
Approved: Approved Prior to Jan 1, 1982 | RLD: No | RS: No | Type: DISCN